FAERS Safety Report 13211161 (Version 3)
Quarter: 2017Q2

REPORT INFORMATION
  Report Type: Spontaneous
  Country: US (occurrence: US)
  Receive Date: 20170210
  Receipt Date: 20170613
  Transmission Date: 20170830
  Serious: Yes (Other)
  Sender: FDA-Public Use
  Company Number: US-PFIZER INC-2017054709

PATIENT
  Age: 42 Year
  Sex: Male
  Weight: 79.38 kg

DRUGS (1)
  1. ZOLOFT [Suspect]
     Active Substance: SERTRALINE HYDROCHLORIDE
     Indication: DEPRESSION
     Dosage: 100 MG, 1X/DAY (AT NIGHT BEFORE BED)
     Route: 048
     Dates: start: 2008, end: 2016

REACTIONS (9)
  - Diplopia [Recovered/Resolved]
  - Thinking abnormal [Recovered/Resolved]
  - Withdrawal syndrome [Recovered/Resolved]
  - Drug use disorder [Recovered/Resolved]
  - Anger [Recovered/Resolved]
  - Suicidal behaviour [Recovered/Resolved]
  - Impaired work ability [Recovered/Resolved]
  - Alcoholism [Recovered/Resolved]
  - Intentional product misuse [Unknown]

NARRATIVE: CASE EVENT DATE: 2008
